FAERS Safety Report 8357587-6 (Version None)
Quarter: 2012Q2

REPORT INFORMATION
  Report Type: 
  Country: None (occurrence: None)
  Receive Date: 20120511
  Receipt Date: 20120426
  Transmission Date: 20120825
  Serious: Yes (Death, Hospitalization)
  Sender: FDA-Public Use
  Company Number: FURO20120004

PATIENT
  Age: 63 Year
  Sex: Female

DRUGS (4)
  1. FUROSEMIDE [Suspect]
     Indication: HYPERTENSION
     Dosage: 20 MG,
  2. ISOSORBIDE DINITRATE (ISOSORBIDE DINITRATE)(ISOSORBIDE DINITRATE) [Concomitant]
  3. AMIODARONE HCL [Concomitant]
  4. VALSARTAN (VALSARTAN) (VALSARTAN) [Concomitant]

REACTIONS (3)
  - CARDIAC ARREST [None]
  - GENERAL PHYSICAL HEALTH DETERIORATION [None]
  - PANCREATITIS ACUTE [None]
